FAERS Safety Report 6383855-3 (Version None)
Quarter: 2009Q3

REPORT INFORMATION
  Report Type: 
  Country: None (occurrence: None)
  Receive Date: 20090929
  Receipt Date: 20090929
  Transmission Date: 20100115
  Serious: Yes (Disabling)
  Sender: FDA-Public Use
  Company Number: None

PATIENT
  Age: 75 Year
  Sex: Female
  Weight: 61.2356 kg

DRUGS (2)
  1. LEVAQUIN [Suspect]
     Indication: DIVERTICULITIS
     Dosage: 7 TABLETS ONCE DAILY PO
     Route: 048
     Dates: start: 20090902, end: 20090904
  2. LEVAQUIN [Suspect]
     Indication: DIVERTICULITIS
     Dosage: 7 TABLETS ONCE DAILY PO
     Route: 048
     Dates: start: 20090916, end: 20090920

REACTIONS (10)
  - ASTHENIA [None]
  - BONE PAIN [None]
  - BURNING SENSATION [None]
  - HYPOAESTHESIA [None]
  - INSOMNIA [None]
  - JOINT SWELLING [None]
  - NERVOUS SYSTEM DISORDER [None]
  - NEURALGIA [None]
  - PAIN [None]
  - PARAESTHESIA [None]
